FAERS Safety Report 8842926 (Version 1)
Quarter: 2012Q4

REPORT INFORMATION
  Report Type: 
  Country: NL (occurrence: NL)
  Receive Date: 20121016
  Receipt Date: 20121016
  Transmission Date: 20130627
  Serious: Yes (Death)
  Sender: FDA-Public Use
  Company Number: NL-ELI_LILLY_AND_COMPANY-EWC990102581

PATIENT
  Age: 27 Year
  Sex: Male

DRUGS (6)
  1. ZYPREXA [Suspect]
     Indication: PSYCHOTIC DISORDER
     Dosage: 10 mg, daily (1/D)
     Route: 048
     Dates: start: 19981016
  2. SERDOLECT [Concomitant]
     Indication: PSYCHOTIC DISORDER
     Dosage: 4 mg, qd
     Route: 048
     Dates: start: 19961006
  3. SERDOLECT [Concomitant]
     Dosage: 8 mg, qd
  4. SERDOLECT [Concomitant]
     Dosage: 12 mg, qd
     Dates: end: 19981016
  5. DALMADORM [Concomitant]
     Dosage: 30 mg, daily (1/D)
     Dates: start: 19981009, end: 19981015
  6. OXAZEPAM [Concomitant]
     Dosage: 75 mg, qd
     Dates: start: 19981009

REACTIONS (4)
  - Death [Fatal]
  - Sedation [Unknown]
  - Pneumonia [Unknown]
  - Drug interaction [Unknown]
